FAERS Safety Report 23291322 (Version 1)
Quarter: 2023Q4

REPORT INFORMATION
  Report Type: Other
  Country: DE (occurrence: DE)
  Receive Date: 20231213
  Receipt Date: 20231213
  Transmission Date: 20240110
  Serious: Yes (Other)
  Sender: FDA-Public Use
  Company Number: DE-MACLEODS PHARMACEUTICALS US LTD-MAC2023044744

PATIENT

DRUGS (17)
  1. VALSARTAN [Suspect]
     Active Substance: VALSARTAN
     Indication: Essential hypertension
     Dosage: 160 MILLIGRAM, QD, (START DATE: 2014 AND STOP DATE: 2018), ONCE DAILY IN THE MORNING AFTER BREAKFAST
     Route: 065
  2. VALSARTAN [Suspect]
     Active Substance: VALSARTAN
     Dosage: UNK, (START DATE: NOV 2017, STOP DATE: APR 2019)
     Route: 065
  3. VALSARTAN [Suspect]
     Active Substance: VALSARTAN
     Indication: Essential hypertension
     Dosage: 160 MILLIGRAM, QD, STOP DATE: JUL 2012
     Route: 065
     Dates: start: 20120423
  4. VALSARTAN [Suspect]
     Active Substance: VALSARTAN
     Dosage: 160 MILLIGRAM, QD, START DATE: DEC 2013 AND STOP DATE: NOV 2015
     Route: 065
  5. VALSARTAN [Suspect]
     Active Substance: VALSARTAN
     Dosage: UNK, START DATE MAR 2014 AND STOP DATE  JUL 2017)
     Route: 065
  6. VALSARTAN [Suspect]
     Active Substance: VALSARTAN
     Dosage: 160 MILLIGRAM
     Route: 065
     Dates: start: 20170727
  7. VALSARTAN [Suspect]
     Active Substance: VALSARTAN
     Indication: Essential hypertension
     Dosage: 160 MILLIGRAM, QD, (START DATE: JUL 2012, STOP DATE: DEC 2013), IN THE MORNING AFTER BREAKFAST
     Route: 065
  8. MOXIFLOXACIN [Concomitant]
     Active Substance: MOXIFLOXACIN
     Indication: Product used for unknown indication
     Dosage: UNK, QD, 400 UNK
     Route: 065
  9. TRIAMCINOLONE [Concomitant]
     Active Substance: TRIAMCINOLONE
     Indication: Product used for unknown indication
     Dosage: UNK, 40 (1X1 ML)
     Route: 065
  10. Ortoton [Concomitant]
     Indication: Product used for unknown indication
     Dosage: UNK, UNK (AT NIGHT)
     Route: 065
  11. Roxi [Concomitant]
     Indication: Product used for unknown indication
     Dosage: UNK UNK, QD
     Route: 065
  12. CIPROFLOXACIN\CIPROFLOXACIN HYDROCHLORIDE [Concomitant]
     Active Substance: CIPROFLOXACIN\CIPROFLOXACIN HYDROCHLORIDE
     Indication: Product used for unknown indication
     Dosage: UNK, UNK (1-0-1)
     Route: 065
  13. NITROFURANTOIN [Concomitant]
     Active Substance: NITROFURANTOIN
     Indication: Product used for unknown indication
     Dosage: UNK
     Route: 065
  14. METAMIZOLE [Concomitant]
     Active Substance: METAMIZOLE
     Indication: Product used for unknown indication
     Dosage: UNK, UNK (3?1 TABLET) (UPTO 4X1-2 IN CASE OF PAIN OR MORE THAN 39 DEGREE CELCIUS)
     Route: 065
  15. PREDNISOLONE [Concomitant]
     Active Substance: PREDNISOLONE
     Indication: Product used for unknown indication
     Dosage: UNK
     Route: 065
  16. DOXYCYCLINE [Concomitant]
     Active Substance: DOXYCYCLINE
     Indication: Product used for unknown indication
     Dosage: UNK
     Route: 065
  17. VALSARTAN [Concomitant]
     Active Substance: VALSARTAN
     Indication: Product used for unknown indication
     Dosage: UNK
     Route: 065

REACTIONS (17)
  - Hypothyroidism [Unknown]
  - Emotional distress [Unknown]
  - Gastritis [Unknown]
  - Anxiety [Unknown]
  - Cardiovascular disorder [Unknown]
  - Spinal pain [Unknown]
  - Quality of life decreased [Unknown]
  - Abdominal discomfort [Unknown]
  - Sleep disorder [Not Recovered/Not Resolved]
  - Fear of disease [Unknown]
  - Hyperhidrosis [Not Recovered/Not Resolved]
  - Palpitations [Unknown]
  - Tremor [Unknown]
  - Restlessness [Unknown]
  - Diarrhoea [Not Recovered/Not Resolved]
  - Nausea [Unknown]
  - Dizziness [Unknown]
